FAERS Safety Report 23698074 (Version 1)
Quarter: 2024Q2

REPORT INFORMATION
  Report Type: Spontaneous
  Country: US (occurrence: None)
  Receive Date: 20240401
  Receipt Date: 20240401
  Transmission Date: 20240716
  Serious: No
  Sender: FDA-Public Use
  Company Number: None

PATIENT

DRUGS (2)
  1. CARBOPLATIN\PACLITAXEL [Suspect]
     Active Substance: CARBOPLATIN\PACLITAXEL
  2. ABRAXANE [Suspect]
     Active Substance: PACLITAXEL

REACTIONS (3)
  - Product appearance confusion [None]
  - Product formulation issue [None]
  - Wrong product administered [None]
